FAERS Safety Report 7995129 (Version 3)
Quarter: 2012Q4

REPORT INFORMATION
  Report Type: Report from Study
  Country: CA (occurrence: CA)
  Receive Date: 20110616
  Receipt Date: 20120914
  Transmission Date: 20130627
  Serious: Yes (Hospitalization)
  Sender: FDA-Public Use
  Company Number: CA-BRISTOL-MYERS SQUIBB COMPANY-15834583

PATIENT
  Age: 55 Year
  Sex: Female
  Weight: 56 kg

DRUGS (10)
  1. PACLITAXEL [Suspect]
     Indication: BREAST CANCER
     Dosage: last dose:20May2011
     Route: 042
     Dates: start: 20110415
  2. ATIVAN [Concomitant]
     Indication: INSOMNIA
     Dates: start: 201102
  3. ATIVAN [Concomitant]
     Indication: ANXIETY
     Dates: start: 201102
  4. CLINDAMYCIN [Concomitant]
     Indication: ACNE
     Dosage: Formulation: Clindamycin1%
     Dates: start: 20110520
  5. 1% HYDROCORTISONE CREAM [Concomitant]
     Indication: ACNE
     Dates: start: 20110520
  6. AVAPRO [Concomitant]
     Indication: HYPERTENSION
     Route: 048
     Dates: start: 201001
  7. PANTOLOC [Concomitant]
     Indication: DYSPEPSIA
     Route: 048
     Dates: start: 20110517
  8. PEPTO-BISMOL [Concomitant]
     Indication: DYSPEPSIA
     Route: 048
     Dates: start: 20110513
  9. MULTIVITAMIN [Concomitant]
     Indication: VITAMIN SUPPLEMENTATION
     Route: 048
     Dates: start: 20110420
  10. IMODIUM [Concomitant]
     Indication: DIARRHOEA
     Dates: start: 20110416, end: 20110521

REACTIONS (1)
  - Biliary colic [Recovered/Resolved]
